FAERS Safety Report 24816142 (Version 1)
Quarter: 2025Q1

REPORT INFORMATION
  Report Type: Spontaneous
  Country: US (occurrence: None)
  Receive Date: 20250107
  Receipt Date: 20250107
  Transmission Date: 20250408
  Serious: Yes (Life-Threatening, Hospitalization, Other)
  Sender: FDA-CTU
  Company Number: None

PATIENT
  Age: 70 Year
  Sex: Female

DRUGS (1)
  1. DEFINITY [Suspect]
     Active Substance: PERFLUTREN
     Indication: Echocardiogram
     Route: 042
     Dates: start: 20241014, end: 20241014

REACTIONS (5)
  - Bradycardia [None]
  - Apnoea [None]
  - Unresponsive to stimuli [None]
  - Erythema [None]
  - Cardio-respiratory arrest [None]

NARRATIVE: CASE EVENT DATE: 20241014
